FAERS Safety Report 21930716 (Version 12)
Quarter: 2023Q1

REPORT INFORMATION
  Report Type: Report from Study
  Country: AU (occurrence: None)
  Receive Date: 20230131
  Receipt Date: 20230328
  Transmission Date: 20230418
  Serious: Yes (Hospitalization)
  Sender: FDA-Public Use
  Company Number: AU-Eisai Medical Research-EC-2023-132848

PATIENT
  Age: 74 Year
  Sex: Male
  Weight: 85.8 kg

DRUGS (16)
  1. LENVATINIB [Suspect]
     Active Substance: LENVATINIB
     Indication: Metastatic malignant melanoma
     Route: 048
     Dates: start: 20221222, end: 20230124
  2. LENVATINIB [Suspect]
     Active Substance: LENVATINIB
     Route: 048
     Dates: start: 20230203, end: 20230206
  3. LENVATINIB [Suspect]
     Active Substance: LENVATINIB
     Route: 048
     Dates: start: 20230209, end: 20230215
  4. LENVATINIB [Suspect]
     Active Substance: LENVATINIB
     Route: 048
     Dates: start: 20230301, end: 20230301
  5. QUAVONLIMAB [Suspect]
     Active Substance: QUAVONLIMAB
     Indication: Metastatic malignant melanoma
     Dosage: MK-1308A 425 MG (QUAVONLIMAB [MK-1308] 25 MG (+) PEMBROLIZUMAB [MK-3475] 400 MG)
     Route: 042
     Dates: start: 20221222, end: 20221222
  6. QUAVONLIMAB [Suspect]
     Active Substance: QUAVONLIMAB
     Dosage: MK-1308A 425 MG (QUAVONLIMAB [MK-1308] 25 MG (+) PEMBROLIZUMAB [MK-3475] 400 MG)
     Route: 042
     Dates: start: 20230203, end: 20230203
  7. QUAVONLIMAB [Suspect]
     Active Substance: QUAVONLIMAB
     Dosage: MK-1308A 425 MG (QUAVONLIMAB [MK-1308] 25 MG (+) PEMBROLIZUMAB [MK-3475] 400 MG)
     Route: 042
     Dates: start: 20230317, end: 20230317
  8. HYDROCHLOROTHIAZIDE\IRBESARTAN [Concomitant]
     Active Substance: HYDROCHLOROTHIAZIDE\IRBESARTAN
     Dates: start: 201201
  9. BEROCCA [Concomitant]
     Active Substance: VITAMINS
     Dates: start: 201201
  10. MDEYES [Concomitant]
     Dates: start: 202006
  11. PRAVASTATIN [Concomitant]
     Active Substance: PRAVASTATIN
     Dates: start: 201201
  12. TRAVOPROST [Concomitant]
     Active Substance: TRAVOPROST
     Dates: start: 201201
  13. RESOLVE TINEA [Concomitant]
     Dates: start: 20230111
  14. PEMBROLIZUMAB [Suspect]
     Active Substance: PEMBROLIZUMAB
  15. PEMBROLIZUMAB [Suspect]
     Active Substance: PEMBROLIZUMAB
  16. PEMBROLIZUMAB [Suspect]
     Active Substance: PEMBROLIZUMAB

REACTIONS (4)
  - Dehydration [Recovered/Resolved]
  - Vomiting [Recovered/Resolved]
  - Pneumonia [Recovered/Resolved]
  - COVID-19 [Recovered/Resolved]

NARRATIVE: CASE EVENT DATE: 20230120
